FAERS Safety Report 11795622 (Version 1)
Quarter: 2015Q4

REPORT INFORMATION
  Report Type: Spontaneous
  Country: GB (occurrence: GB)
  Receive Date: 20151202
  Receipt Date: 20151202
  Transmission Date: 20160305
  Serious: Yes (Hospitalization)
  Sender: FDA-Public Use
  Company Number: GB-009507513-0801USA04497

PATIENT
  Age: 62 Year
  Sex: Male

DRUGS (7)
  1. MK-3009 [Suspect]
     Active Substance: DAPTOMYCIN
     Dosage: 5 MG, UNK
  2. MK-3009 [Suspect]
     Active Substance: DAPTOMYCIN
     Dosage: 5 MG, UNK
  3. CEFTAZIDIME. [Concomitant]
     Active Substance: CEFTAZIDIME
     Route: 042
  4. MK-3009 [Suspect]
     Active Substance: DAPTOMYCIN
     Indication: ENTEROCOCCAL INFECTION
     Dosage: 10 MG, UNK
  5. GENTAMICIN. [Concomitant]
     Active Substance: GENTAMICIN
  6. MK-3009 [Suspect]
     Active Substance: DAPTOMYCIN
     Indication: CNS VENTRICULITIS
     Dosage: 1 G, QD
     Route: 042
  7. VANCOMYCIN [Concomitant]
     Active Substance: VANCOMYCIN

REACTIONS (3)
  - Drug ineffective for unapproved indication [Unknown]
  - Pyrexia [Recovered/Resolved]
  - Meningitis enterococcal [Recovered/Resolved]
